FAERS Safety Report 8349156-9 (Version None)
Quarter: 2012Q2

REPORT INFORMATION
  Report Type: 
  Country: None (occurrence: None)
  Receive Date: 20120510
  Receipt Date: 20120425
  Transmission Date: 20120825
  Serious: Yes (Life-Threatening, Hospitalization)
  Sender: FDA-Public Use
  Company Number: DE-RANBAXY-2012RR-56070

PATIENT
  Age: 70 Year
  Sex: Male
  Weight: 75 kg

DRUGS (4)
  1. VERAPAMIL [Suspect]
     Dosage: 120 MG, BID
     Route: 048
     Dates: start: 20120401, end: 20120419
  2. SIMVASTATIN [Suspect]
     Indication: ARTERIOSCLEROSIS CORONARY ARTERY
     Dosage: 80 MG, QD
     Route: 048
     Dates: start: 20090101, end: 20120419
  3. VERAPAMIL [Suspect]
     Indication: ATRIAL FLUTTER
     Dosage: 120 MG, TID
     Route: 048
     Dates: start: 20120101, end: 20120401
  4. MARCUMAR [Suspect]
     Indication: ATRIAL FLUTTER
     Dosage: UNK
     Route: 048
     Dates: start: 20120101, end: 20120419

REACTIONS (3)
  - RHABDOMYOLYSIS [None]
  - SKIN DISORDER [None]
  - TRANSAMINASES INCREASED [None]
